FAERS Safety Report 17226454 (Version 1)
Quarter: 2020Q1

REPORT INFORMATION
  Report Type: Spontaneous
  Country: DE (occurrence: DE)
  Receive Date: 20200102
  Receipt Date: 20200102
  Transmission Date: 20200409
  Serious: Yes (Other)
  Sender: FDA-Public Use
  Company Number: DE-BAUSCH-BL-2019-066565

PATIENT
  Sex: Female

DRUGS (3)
  1. METFORMIN [Suspect]
     Active Substance: METFORMIN HYDROCHLORIDE
     Indication: PRODUCT USED FOR UNKNOWN INDICATION
     Dosage: UNKNOWN ((2 X 1) IN THE LAST 10 YEARS)
     Route: 048
     Dates: start: 2009
  2. CELECOXIB. [Suspect]
     Active Substance: CELECOXIB
     Indication: PRODUCT USED FOR UNKNOWN INDICATION
     Dosage: 2 OT, AS NEEDED (PRN) (1-2 PER DAY IF NECESSARY))
     Route: 048
     Dates: start: 20190401, end: 20191002
  3. AMLODIPINE [Suspect]
     Active Substance: AMLODIPINE BESYLATE
     Indication: PRODUCT USED FOR UNKNOWN INDICATION
     Dosage: (1/2 PER DAY) IN THE LAST 10 DAYS
     Route: 048
     Dates: start: 201910

REACTIONS (5)
  - Melaena [Unknown]
  - Arthralgia [Unknown]
  - Hyperhidrosis [Unknown]
  - Communication disorder [Unknown]
  - Alopecia [Unknown]

NARRATIVE: CASE EVENT DATE: 20191002
